FAERS Safety Report 19684855 (Version 1)
Quarter: 2021Q3

REPORT INFORMATION
  Report Type: Spontaneous
  Country: US (occurrence: US)
  Receive Date: 20210810
  Receipt Date: 20210810
  Transmission Date: 20211014
  Serious: No
  Sender: FDA-Public Use
  Company Number: None

PATIENT
  Sex: Female

DRUGS (2)
  1. NUCALA [Suspect]
     Active Substance: MEPOLIZUMAB
     Indication: ASTHMA
     Dosage: 100MG EVERY 28 DAYS SUB?Q
     Route: 058
     Dates: start: 202010
  2. NUCALA [Suspect]
     Active Substance: MEPOLIZUMAB
     Indication: ILLNESS
     Dosage: 100MG EVERY 28 DAYS SUB?Q
     Route: 058
     Dates: start: 202010

REACTIONS (2)
  - Multiple allergies [None]
  - Pruritus [None]
